FAERS Safety Report 9695356 (Version 1)
Quarter: 2013Q4

REPORT INFORMATION
  Report Type: Spontaneous
  Country: US (occurrence: US)
  Receive Date: 20131119
  Receipt Date: 20131119
  Transmission Date: 20140711
  Serious: Yes (Other)
  Sender: FDA-Public Use
  Company Number: US-ASTRAZENECA-2013SE82893

PATIENT
  Sex: Male

DRUGS (1)
  1. ACCOLATE [Suspect]
     Route: 048

REACTIONS (1)
  - Neoplasm malignant [Unknown]
